FAERS Safety Report 7363842-9 (Version None)
Quarter: 2011Q1

REPORT INFORMATION
  Report Type: 
  Country: None (occurrence: None)
  Receive Date: 20110321
  Receipt Date: 20110310
  Transmission Date: 20110831
  Serious: Yes (Disabling, Other)
  Sender: FDA-Public Use
  Company Number: JP-ROCHE-713539

PATIENT
  Sex: Male
  Weight: 56 kg

DRUGS (7)
  1. NORVASC [Concomitant]
     Dosage: NOTE: 2007/9/3 FORMER
     Route: 048
     Dates: end: 20100424
  2. NOVORAPID [Concomitant]
     Dosage: NOTE: MORNING BEFORE 2007/9/3
     Route: 058
     Dates: end: 20100424
  3. PEGASYS [Suspect]
     Route: 058
     Dates: start: 20090713, end: 20090826
  4. NOVORAPID [Concomitant]
     Dosage: NOTE: EVENING BEFORE 2007/9/3
     Route: 058
     Dates: end: 20100424
  5. PEGASYS [Suspect]
     Route: 058
     Dates: start: 20090518, end: 20090712
  6. URSODESOXYCHOLIC ACID [Concomitant]
     Route: 048
  7. PEGASYS [Suspect]
     Route: 058
     Dates: start: 20090911, end: 20100423

REACTIONS (2)
  - PLATELET COUNT DECREASED [None]
  - THALAMUS HAEMORRHAGE [None]
